FAERS Safety Report 4316678-7 (Version None)
Quarter: 2004Q1

REPORT INFORMATION
  Report Type: 
  Country: None (occurrence: None)
  Receive Date: 20040311
  Receipt Date: 20040304
  Transmission Date: 20041129
  Serious: Yes (Hospitalization)
  Sender: FDA-Public Use
  Company Number: 2004202344AT

PATIENT
  Sex: Female

DRUGS (7)
  1. CABERGOLINE [Suspect]
     Indication: PARKINSON'S DISEASE
     Dosage: 1 MG/DAY, ORAL
     Route: 048
     Dates: start: 20040227, end: 20040301
  2. VALPROIC ACID [Concomitant]
  3. PLAVIX [Concomitant]
  4. ACECOMB [Concomitant]
  5. MOLSIDOLAT [Concomitant]
  6. MADOPAR (BENSERAZIDE HYDROCHLORIDE) [Concomitant]
  7. LAMICTAL [Concomitant]

REACTIONS (5)
  - CONDITION AGGRAVATED [None]
  - DYSPHAGIA [None]
  - IMMOBILE [None]
  - MENTAL IMPAIRMENT [None]
  - PARKINSON'S DISEASE [None]
